FAERS Safety Report 4605879-6 (Version None)
Quarter: 2005Q2

REPORT INFORMATION
  Report Type: 
  Country: None (occurrence: None)
  Receive Date: 20050303
  Receipt Date: 20041207
  Transmission Date: 20051028
  Serious: No
  Sender: FDA-Public Use
  Company Number: 200419935BWH

PATIENT
  Age: 45 Year
  Sex: Male

DRUGS (6)
  1. LEVITRA [Suspect]
     Indication: ERECTILE DYSFUNCTION
     Dosage: 20 MG, ONCE, ORAL
     Route: 048
     Dates: start: 20040801
  2. MINOXIDIL [Concomitant]
  3. LABETALOL [Concomitant]
  4. NORVASC [Concomitant]
  5. EXCEDRIN (MIGRAINE) [Concomitant]
  6. NEUROPOVITE VITAMIN [Concomitant]

REACTIONS (1)
  - ERECTILE DYSFUNCTION [None]
